FAERS Safety Report 14925795 (Version 1)
Quarter: 2018Q2

REPORT INFORMATION
  Report Type: Spontaneous
  Country: DE (occurrence: DE)
  Receive Date: 20180522
  Receipt Date: 20180522
  Transmission Date: 20180711
  Serious: Yes (Hospitalization)
  Sender: FDA-Public Use
  Company Number: DE-ANIPHARMA-2018-DE-000087

PATIENT
  Age: 73 Year
  Sex: Female

DRUGS (5)
  1. PANTOPRAZOLE SODIUM. [Concomitant]
     Active Substance: PANTOPRAZOLE SODIUM
     Dosage: 40 MG DAILY
  2. IBUPROFEN. [Suspect]
     Active Substance: IBUPROFEN
     Dosage: 400 MG EVERY 12 HOURS
  3. TORASEMIDE [Suspect]
     Active Substance: TORSEMIDE
  4. CANDESARTAN CILEXETIL. [Suspect]
     Active Substance: CANDESARTAN CILEXETIL
     Route: 048
  5. METAMIZOLE [Suspect]
     Active Substance: METAMIZOLE
     Dosage: 500 MG EVERY 6 HOURS

REACTIONS (3)
  - Nausea [Unknown]
  - Vomiting [Unknown]
  - Diarrhoea [Unknown]
